FAERS Safety Report 5833806-2 (Version None)
Quarter: 2008Q3

REPORT INFORMATION
  Report Type: 
  Country: None (occurrence: None)
  Receive Date: 20080804
  Receipt Date: 20080804
  Transmission Date: 20090109
  Serious: Yes (Hospitalization, Other)
  Sender: FDA-Public Use
  Company Number: None

PATIENT
  Age: 47 Year
  Sex: Female
  Weight: 64.4108 kg

DRUGS (6)
  1. LIPITOR [Suspect]
     Indication: HYPERLIPIDAEMIA
     Dosage: 20MG 1 DAY PO, 10MG 1 DAY PO
     Route: 048
     Dates: start: 20060801, end: 20070331
  2. LIPITOR [Suspect]
     Indication: LOW DENSITY LIPOPROTEIN INCREASED
     Dosage: 20MG 1 DAY PO, 10MG 1 DAY PO
     Route: 048
     Dates: start: 20060801, end: 20070331
  3. PRAVACHOL [Concomitant]
  4. WELCHOL [Concomitant]
  5. VYTORIN [Concomitant]
  6. PLAVIX [Concomitant]

REACTIONS (5)
  - ANGER [None]
  - BONE PAIN [None]
  - BURNING SENSATION [None]
  - CHEST PAIN [None]
  - MYALGIA [None]
